FAERS Safety Report 24620783 (Version 1)
Quarter: 2024Q4

REPORT INFORMATION
  Report Type: Spontaneous
  Country: RU (occurrence: RU)
  Receive Date: 20241114
  Receipt Date: 20241114
  Transmission Date: 20250115
  Serious: Yes (Other)
  Sender: ALEXION PHARMACEUTICALS
  Company Number: RU-AstraZeneca-CH-00739867A

PATIENT

DRUGS (4)
  1. ANIFROLUMAB [Suspect]
     Active Substance: ANIFROLUMAB
     Indication: Systemic lupus erythematosus
  2. ANIFROLUMAB [Suspect]
     Active Substance: ANIFROLUMAB
  3. ANIFROLUMAB [Suspect]
     Active Substance: ANIFROLUMAB
  4. ANIFROLUMAB [Suspect]
     Active Substance: ANIFROLUMAB

REACTIONS (2)
  - Erythema [Unknown]
  - Eyelid oedema [Unknown]
